FAERS Safety Report 24217200 (Version 1)
Quarter: 2024Q3

REPORT INFORMATION
  Report Type: Spontaneous
  Country: CH (occurrence: CH)
  Receive Date: 20240816
  Receipt Date: 20240816
  Transmission Date: 20241016
  Serious: Yes (Hospitalization)
  Sender: AMGEN
  Company Number: CH-AMGEN-CHESP2024158839

PATIENT
  Age: 64 Year
  Sex: Female
  Weight: 50 kg

DRUGS (2)
  1. PROLIA [Suspect]
     Active Substance: DENOSUMAB
     Indication: Osteoporosis
     Dosage: 60 MILLIGRAM, Q6MO (1 SEPARATED DOSES)
     Route: 058
     Dates: start: 20190401, end: 20240522
  2. TACROLIMUS [Suspect]
     Active Substance: TACROLIMUS
     Indication: Liver transplant
     Dosage: 4 MILLIGRAM, QD (2 SEPARATED DOSES)
     Route: 048
     Dates: start: 20160101

REACTIONS (2)
  - Hypophosphataemia [Recovering/Resolving]
  - Hypocalcaemia [Recovering/Resolving]

NARRATIVE: CASE EVENT DATE: 20240615
